FAERS Safety Report 5424604-2 (Version None)
Quarter: 2007Q3

REPORT INFORMATION
  Report Type: 
  Country: None (occurrence: None)
  Receive Date: 20070824
  Receipt Date: 20070814
  Transmission Date: 20080115
  Serious: Yes (Other)
  Sender: FDA-Public Use
  Company Number: IT-ABBOTT-07P-083-0378132-00

PATIENT

DRUGS (8)
  1. CYCLOSPORINE [Suspect]
     Indication: IMMUNOSUPPRESSANT DRUG THERAPY
     Dosage: 1 TO 2 MG/KG PER DAY
     Route: 042
  2. CYCLOSPORINE [Suspect]
     Dosage: 2 MG/KG TWICE DAILY
     Route: 048
  3. CAMPATH [Concomitant]
     Indication: IMMUNOSUPPRESSANT DRUG THERAPY
     Route: 042
  4. METHYLPREDNISOLONE 16MG TAB [Concomitant]
     Indication: IMMUNOSUPPRESSANT DRUG THERAPY
     Route: 042
  5. METHYLPREDNISOLONE 16MG TAB [Concomitant]
     Route: 042
  6. METHYLPREDNISOLONE 16MG TAB [Concomitant]
     Route: 042
  7. SIROLIMUS [Concomitant]
     Indication: IMMUNOSUPPRESSANT DRUG THERAPY
     Route: 048
  8. MYCOPHENOLATE MOFETIL [Concomitant]
     Indication: IMMUNOSUPPRESSANT DRUG THERAPY
     Route: 048

REACTIONS (1)
  - SEPSIS [None]
